FAERS Safety Report 7102916-4 (Version None)
Quarter: 2010Q4

REPORT INFORMATION
  Report Type: 
  Country: None (occurrence: None)
  Receive Date: 20101115
  Receipt Date: 20090601
  Transmission Date: 20110411
  Serious: No
  Sender: FDA-Public Use
  Company Number: US-KINGPHARMUSA00001-K200900670

PATIENT
  Age: 18 Month
  Sex: Male

DRUGS (1)
  1. PENICILLIN G PROCAINE [Suspect]
     Dosage: UNK
     Dates: start: 20020101, end: 20020101

REACTIONS (1)
  - SWELLING FACE [None]
